FAERS Safety Report 12979832 (Version 4)
Quarter: 2017Q2

REPORT INFORMATION
  Report Type: Report from Study
  Country: CN (occurrence: CN)
  Receive Date: 20161128
  Receipt Date: 20170412
  Transmission Date: 20170830
  Serious: Yes (Other)
  Sender: FDA-Public Use
  Company Number: PHHY2016CN159368

PATIENT
  Age: 50 Year
  Sex: Female
  Weight: 61.8 kg

DRUGS (46)
  1. MYFORTIC [Suspect]
     Active Substance: MYCOPHENOLATE SODIUM
     Indication: RENAL TRANSPLANT
     Dosage: 1440 MG, QD
     Route: 065
     Dates: start: 20160906, end: 20160913
  2. METHYLPREDNISOLONE. [Suspect]
     Active Substance: METHYLPREDNISOLONE
     Indication: IMMUNOSUPPRESSANT DRUG THERAPY
     Dosage: 740 MG, QD
     Route: 065
     Dates: start: 20160906, end: 20160906
  3. METHYLPREDNISOLONE. [Suspect]
     Active Substance: METHYLPREDNISOLONE
     Dosage: 40 MG, QD
     Route: 065
     Dates: start: 20160910, end: 20160913
  4. TACROLIMUS. [Suspect]
     Active Substance: TACROLIMUS
     Dosage: 5 MG, QD
     Route: 065
     Dates: start: 20160923, end: 20170313
  5. COMPOUND GLYCYRRHIZA [Concomitant]
     Indication: HEPATIC FUNCTION ABNORMAL
     Dosage: 60 ML, QD
     Route: 042
     Dates: start: 20160913, end: 20160923
  6. GANCICLOVIR. [Concomitant]
     Active Substance: GANCICLOVIR
     Indication: VIRAL INFECTION
     Dosage: 500 MG, IRREG
     Route: 048
     Dates: start: 20160923
  7. HEPARIN SODIUM. [Concomitant]
     Active Substance: HEPARIN SODIUM
     Indication: PROPHYLAXIS
     Dosage: 12500 IU, W1D4
     Route: 042
     Dates: start: 20160908, end: 20160923
  8. MUCOSOLVAN [Concomitant]
     Active Substance: AMBROXOL HYDROCHLORIDE
     Indication: COUGH
     Dosage: 15 MG, BID
     Route: 055
     Dates: start: 20160909, end: 20160913
  9. BASILIXIMAB [Suspect]
     Active Substance: BASILIXIMAB
     Indication: RENAL TRANSPLANT
     Dosage: 20 MG, QD
     Route: 042
     Dates: start: 20160906, end: 20160906
  10. TACROLIMUS. [Suspect]
     Active Substance: TACROLIMUS
     Indication: IMMUNOSUPPRESSANT DRUG THERAPY
     Dosage: 7 MG, QD
     Route: 065
     Dates: start: 20160907, end: 20160908
  11. TACROLIMUS. [Suspect]
     Active Substance: TACROLIMUS
     Dosage: 7 MG, QD
     Route: 065
     Dates: start: 20160913, end: 20160918
  12. TACROLIMUS. [Suspect]
     Active Substance: TACROLIMUS
     Dosage: 6 MG, QD
     Route: 065
     Dates: start: 20160919, end: 20160920
  13. ACARBOSE. [Concomitant]
     Active Substance: ACARBOSE
     Indication: BLOOD GLUCOSE INCREASED
     Dosage: 100 MG, TID
     Route: 048
     Dates: start: 20160921
  14. BERBERINE [Concomitant]
     Active Substance: BERBERINE
     Indication: ANTIBIOTIC PROPHYLAXIS
     Dosage: 300 MG, TID
     Route: 048
     Dates: start: 20160921, end: 20160923
  15. FUROSEMIDE. [Concomitant]
     Active Substance: FUROSEMIDE
     Indication: POLYURIA
     Dosage: 40 MG, BID
     Route: 042
     Dates: start: 20160907, end: 20160923
  16. MUCOSOLVAN [Concomitant]
     Active Substance: AMBROXOL HYDROCHLORIDE
     Indication: PRODUCTIVE COUGH
     Dosage: 45 MG, QD
     Route: 042
     Dates: start: 20160909, end: 20160913
  17. POTASSIUM CHLORIDE. [Concomitant]
     Active Substance: POTASSIUM CHLORIDE
     Indication: ELECTROLYTE SUBSTITUTION THERAPY
     Dosage: 1000 MG, TID
     Route: 048
     Dates: start: 20160913, end: 20160921
  18. SMECTA [Concomitant]
     Active Substance: MONTMORILLONITE
     Indication: DIARRHOEA
     Dosage: 3000 MG, TID
     Route: 048
     Dates: start: 20160921
  19. ALPROSTADIL. [Concomitant]
     Active Substance: ALPROSTADIL
     Indication: CARDIOVASCULAR INSUFFICIENCY
     Dosage: 20 UG, QD
     Route: 042
     Dates: start: 20160907, end: 20160923
  20. BASILIXIMAB [Suspect]
     Active Substance: BASILIXIMAB
     Indication: PROPHYLAXIS AGAINST TRANSPLANT REJECTION
     Dosage: 20 MG, QD
     Route: 042
     Dates: start: 20160910, end: 20160910
  21. ETIMICIN [Concomitant]
     Active Substance: ETIMICIN SULFATE
     Indication: INFECTION
     Dosage: 150 MG, QD
     Route: 042
     Dates: start: 20160907, end: 20160915
  22. RECOMBINANT HUMAN ERYTHROPOIETIN [Concomitant]
     Active Substance: ERYTHROPOIETIN
     Indication: ANAEMIA PROPHYLAXIS
     Dosage: 6000 IU, W3D1
     Route: 042
     Dates: start: 20160912, end: 20160923
  23. MYFORTIC [Suspect]
     Active Substance: MYCOPHENOLATE SODIUM
     Indication: PROPHYLAXIS AGAINST TRANSPLANT REJECTION
  24. METHYLPREDNISOLONE. [Suspect]
     Active Substance: METHYLPREDNISOLONE
     Dosage: 620 MG, QD
     Route: 065
     Dates: start: 20160907, end: 20160908
  25. TACROLIMUS. [Suspect]
     Active Substance: TACROLIMUS
     Dosage: 4 MG, QD
     Route: 065
     Dates: start: 20160921, end: 20160922
  26. TACROLIMUS. [Suspect]
     Active Substance: TACROLIMUS
     Dosage: 4 MG, QD
     Route: 065
     Dates: start: 20170314
  27. DIAMMONIUM GLYCYRRHIZINATE [Concomitant]
     Active Substance: HERBALS
     Indication: HEPATIC FUNCTION ABNORMAL
     Dosage: 150 MG, TID
     Route: 048
     Dates: start: 20160923
  28. SULBACTAM [Concomitant]
     Active Substance: SULBACTAM
     Indication: INFECTION
     Dosage: 1500 MG, QD
     Route: 042
     Dates: start: 20160907, end: 20160914
  29. TALCID [Concomitant]
     Active Substance: HYDROTALCITE
     Indication: PROPHYLAXIS
     Dosage: 1000 MG, QD
     Route: 048
     Dates: start: 20160907
  30. CALCIUM [Concomitant]
     Active Substance: CALCIUM
     Indication: PROPHYLAXIS
     Dosage: 3000 MG, QD
     Route: 042
     Dates: start: 20160907, end: 20160908
  31. BISOPROLOL FUMARATE. [Concomitant]
     Active Substance: BISOPROLOL FUMARATE
     Indication: BLOOD PRESSURE INCREASED
     Dosage: 5 MG, QD
     Route: 048
     Dates: start: 20170314
  32. METHYLPREDNISOLONE. [Suspect]
     Active Substance: METHYLPREDNISOLONE
     Dosage: 320 MG, QD
     Route: 065
     Dates: start: 20160909, end: 20160909
  33. METHYLPREDNISOLONE. [Suspect]
     Active Substance: METHYLPREDNISOLONE
     Dosage: 20 MG, QD
     Route: 065
     Dates: start: 20160914, end: 20160923
  34. SODIUM BICARBONATE. [Concomitant]
     Active Substance: SODIUM BICARBONATE
     Indication: ELECTROLYTE SUBSTITUTION THERAPY
     Dosage: 1000 MG, BID
     Route: 048
     Dates: start: 20160915
  35. PROMETHAZINE [Concomitant]
     Active Substance: PROMETHAZINE\PROMETHAZINE HYDROCHLORIDE
     Indication: SEDATION
     Dosage: 2 DF, TID
     Route: 048
     Dates: start: 20160907, end: 20160923
  36. TACROLIMUS. [Suspect]
     Active Substance: TACROLIMUS
     Dosage: 5 MG, QD
     Route: 065
     Dates: start: 20160909, end: 20160912
  37. CALCIUM [Concomitant]
     Active Substance: CALCIUM
     Indication: PROPHYLAXIS
     Dosage: 3000 MG, QD
     Route: 042
     Dates: start: 20160907, end: 20160908
  38. MOXIFLOXACIN. [Concomitant]
     Active Substance: MOXIFLOXACIN
     Indication: INFECTION
     Dosage: 400 MG, QD
     Route: 042
     Dates: start: 20160912, end: 20160919
  39. MYFORTIC [Suspect]
     Active Substance: MYCOPHENOLATE SODIUM
     Indication: IMMUNOSUPPRESSANT DRUG THERAPY
     Dosage: 1080 MG, QD
     Route: 065
     Dates: start: 20160914
  40. PREDNISONE. [Suspect]
     Active Substance: PREDNISONE
     Dosage: 5 MG, QD
     Route: 065
     Dates: start: 20170314
  41. ESOMEPRAZOL MAGNESIO [Concomitant]
     Indication: PROPHYLAXIS
     Dosage: 40 MG, QD
     Route: 042
     Dates: start: 20160907, end: 20160923
  42. TORASEMIDE [Concomitant]
     Active Substance: TORSEMIDE
     Indication: DIURETIC THERAPY
     Dosage: 20 MG, QD
     Route: 042
     Dates: start: 20160910, end: 20160912
  43. ALPRAZOLAM. [Concomitant]
     Active Substance: ALPRAZOLAM
     Indication: SEDATION
     Dosage: 0.4 MG, QD
     Route: 048
     Dates: start: 20160907, end: 20160923
  44. CASPOFUNGIN ACETATE. [Concomitant]
     Active Substance: CASPOFUNGIN ACETATE
     Indication: INFECTION
     Dosage: 50 MG, QD
     Route: 042
     Dates: start: 20160906, end: 20160914
  45. PREDNISONE. [Suspect]
     Active Substance: PREDNISONE
     Indication: IMMUNOSUPPRESSANT DRUG THERAPY
     Dosage: 15 MG, QD
     Route: 065
     Dates: start: 20160923, end: 20170313
  46. FUROSEMIDE. [Concomitant]
     Active Substance: FUROSEMIDE
     Indication: DIURETIC THERAPY
     Dosage: 15 MG, QD
     Route: 048
     Dates: start: 20160923

REACTIONS (15)
  - C-reactive protein increased [Unknown]
  - Blood glucose increased [Unknown]
  - Blood urea increased [Unknown]
  - Haemoglobin decreased [Unknown]
  - White blood cell count decreased [Unknown]
  - Incision site pain [Recovering/Resolving]
  - Blood creatinine increased [Unknown]
  - Red blood cells urine positive [Unknown]
  - Lymphocyte count decreased [Recovered/Resolved]
  - Diabetes mellitus [Unknown]
  - Blood albumin decreased [Unknown]
  - Protein urine present [Unknown]
  - Alanine aminotransferase increased [Recovering/Resolving]
  - Platelet count decreased [Unknown]
  - Hepatic function abnormal [Unknown]

NARRATIVE: CASE EVENT DATE: 20160907
